FAERS Safety Report 20292269 (Version 4)
Quarter: 2024Q2

REPORT INFORMATION
  Report Type: Report from Study
  Country: DE (occurrence: DE)
  Receive Date: 20220104
  Receipt Date: 20240402
  Transmission Date: 20240715
  Serious: Yes (Hospitalization, Other)
  Sender: FDA-Public Use
  Company Number: DE-002147023-NVSC2021DE283729

PATIENT
  Sex: Female

DRUGS (19)
  1. METHOTREXATE SODIUM [Suspect]
     Active Substance: METHOTREXATE SODIUM
     Dosage: 10 MG, WEEKLY
     Dates: end: 202210
  2. HYRIMOZ [Suspect]
     Active Substance: ADALIMUMAB-ADAZ
     Indication: Rheumatoid arthritis
     Dosage: 40 MG, Q2W (EVERY 2 WEEKS)
     Dates: start: 201902, end: 202210
  3. AMLODIPINE [Concomitant]
     Active Substance: AMLODIPINE BESYLATE
     Dosage: UNK
  4. HUMIRA [Concomitant]
     Active Substance: ADALIMUMAB
     Dosage: 40 MG
     Dates: start: 201210, end: 201902
  5. IRON [Concomitant]
     Active Substance: IRON
     Dosage: UNK
  6. BROTIZOLAM [Concomitant]
     Active Substance: BROTIZOLAM
     Dosage: UNK
  7. LEVOTHYROXINE [Concomitant]
     Active Substance: LEVOTHYROXINE\LEVOTHYROXINE SODIUM
     Dosage: UNK
  8. NITROGLYCERIN [Concomitant]
     Active Substance: NITROGLYCERIN
     Dosage: UNK, AS NEEDED
  9. RAMIPRIL [Concomitant]
     Active Substance: RAMIPRIL
     Dosage: UNK
  10. RANEXA [Concomitant]
     Active Substance: RANOLAZINE
     Dosage: UNK
  11. SIMVASTATIN [Concomitant]
     Active Substance: SIMVASTATIN
     Dosage: UNK
  12. METFORMIN\SITAGLIPTIN [Concomitant]
     Active Substance: METFORMIN\SITAGLIPTIN
     Dosage: UNK
  13. VITAMIN B12 [Concomitant]
     Active Substance: CYANOCOBALAMIN
     Dosage: UNK
  14. VITAMIN D3 [Concomitant]
     Active Substance: CHOLECALCIFEROL
     Dosage: UNK
  15. FOLIC ACID [Concomitant]
     Active Substance: FOLIC ACID
     Dosage: UNK
  16. NITRENDIPINE [Concomitant]
     Active Substance: NITRENDIPINE
     Dosage: UNK
  17. ASPIRIN [Concomitant]
     Active Substance: ASPIRIN
     Dosage: UNK
  18. PREGABALIN [Concomitant]
     Active Substance: PREGABALIN
     Dosage: UNK
  19. METFORMIN [Concomitant]
     Active Substance: METFORMIN HYDROCHLORIDE
     Dosage: UNK

REACTIONS (5)
  - Herpes zoster [Unknown]
  - Weight decreased [Recovered/Resolved]
  - Haematochezia [Unknown]
  - Gastritis [Unknown]
  - Lymphadenopathy [Unknown]

NARRATIVE: CASE EVENT DATE: 20210615
